FAERS Safety Report 8327576 (Version 2)
Quarter: 2013Q1

REPORT INFORMATION
  Report Type: Report from Study
  Country: US (occurrence: US)
  Receive Date: 20120109
  Receipt Date: 20130128
  Transmission Date: 20140127
  Serious: Yes (Other)
  Sender: FDA-Public Use
  Company Number: US-ASTRAZENECA-2012SE00806

PATIENT
  Sex: 0

DRUGS (2)
  1. VANDETANIB [Suspect]
     Indication: GLIOMA
     Dosage: 65-85 MG/M2
     Route: 048
  2. DASATINIB [Suspect]
     Indication: GLIOMA
     Dosage: 65 MG/M2

REACTIONS (1)
  - Hypoalbuminaemia [Unknown]
